FAERS Safety Report 13116302 (Version 1)
Quarter: 2017Q1

REPORT INFORMATION
  Report Type: Spontaneous
  Country: US (occurrence: US)
  Receive Date: 20170116
  Receipt Date: 20170116
  Transmission Date: 20170428
  Serious: Yes (Death, Other)
  Sender: FDA-Public Use
  Company Number: US-APOTEX-2017AP005454

PATIENT
  Age: 49 Year
  Sex: Male

DRUGS (4)
  1. BUPROPION HYDROCHLORIDE. [Suspect]
     Active Substance: BUPROPION HYDROCHLORIDE
     Indication: PRODUCT USED FOR UNKNOWN INDICATION
     Dosage: INGST + ASPIR
     Route: 050
  2. QUETIAPINE FUMARATE. [Suspect]
     Active Substance: QUETIAPINE FUMARATE
     Indication: PRODUCT USED FOR UNKNOWN INDICATION
     Dosage: INGST + ASPIR
     Route: 050
  3. ALCOHOL. [Suspect]
     Active Substance: ALCOHOL
     Dosage: ASPIR ROUT
     Route: 050
  4. ALCOHOL. [Suspect]
     Active Substance: ALCOHOL
     Indication: PRODUCT USED FOR UNKNOWN INDICATION
     Dosage: INGST + ASPIR
     Route: 050

REACTIONS (1)
  - Completed suicide [Fatal]
